FAERS Safety Report 9266180 (Version 2)
Quarter: 2016Q3

REPORT INFORMATION
  Report Type: Spontaneous
  Country: AU (occurrence: AU)
  Receive Date: 20130502
  Receipt Date: 20160916
  Transmission Date: 20161109
  Serious: Yes (Other)
  Sender: FDA-Public Use
  Company Number: AU-009507513-1109USA00409

PATIENT
  Age: 9 Year
  Sex: Male

DRUGS (1)
  1. SINGULAIR [Suspect]
     Active Substance: MONTELUKAST SODIUM
     Route: 048
     Dates: start: 201102, end: 20110831

REACTIONS (7)
  - Suicidal ideation [Unknown]
  - Irritability [Unknown]
  - Fear [Unknown]
  - Appetite disorder [Unknown]
  - Social avoidant behaviour [Unknown]
  - Crying [Unknown]
  - Mood altered [Unknown]

NARRATIVE: CASE EVENT DATE: 2011
